FAERS Safety Report 25958507 (Version 2)
Quarter: 2025Q4

REPORT INFORMATION
  Report Type: Report from Study
  Country: IN (occurrence: IN)
  Receive Date: 20251024
  Receipt Date: 20251113
  Transmission Date: 20260118
  Serious: Yes (Death)
  Sender: ELI LILLY AND COMPANY
  Company Number: IN-ELI_LILLY_AND_COMPANY-IN202510024865

PATIENT
  Age: 65 Year
  Sex: Female
  Weight: 65 kg

DRUGS (2)
  1. INSULIN LISPRO [Suspect]
     Active Substance: INSULIN LISPRO
     Indication: Type 2 diabetes mellitus
     Dosage: UNK UNK, UNKNOWN
     Route: 058
     Dates: start: 20250307, end: 20250927
  2. BASAGLAR [Suspect]
     Active Substance: INSULIN GLARGINE
     Indication: Type 2 diabetes mellitus
     Dosage: UNK, UNKNOWN
     Route: 058
     Dates: start: 20250307, end: 20250927

REACTIONS (1)
  - Myocardial infarction [Fatal]

NARRATIVE: CASE EVENT DATE: 20250928
